FAERS Safety Report 4432211-3 (Version None)
Quarter: 2004Q3

REPORT INFORMATION
  Report Type: 
  Country: None (occurrence: None)
  Receive Date: 20040820
  Receipt Date: 20040804
  Transmission Date: 20050211
  Serious: Yes (Hospitalization)
  Sender: FDA-Public Use
  Company Number: DSA_24799_2004

PATIENT
  Age: 80 Year
  Sex: Female

DRUGS (7)
  1. HERBESSER R [Suspect]
     Indication: HYPERTENSION
     Dosage: 100 MG Q DAY PO
     Route: 048
     Dates: start: 20040131, end: 20040704
  2. NITRODERM [Concomitant]
  3. PROPAFENONE HCL [Concomitant]
  4. 8-HOUR BAYER [Concomitant]
  5. CEPHADOL [Concomitant]
  6. ISOSORBIDE DINITRATE [Concomitant]
  7. EXCELASE [Concomitant]

REACTIONS (6)
  - ACUTE MYOCARDIAL INFARCTION [None]
  - ATRIOVENTRICULAR BLOCK [None]
  - BRADYCARDIA [None]
  - DEPRESSED LEVEL OF CONSCIOUSNESS [None]
  - DIFFICULTY IN WALKING [None]
  - HYPOTENSION [None]
